FAERS Safety Report 9737564 (Version 1)
Quarter: 2013Q4

REPORT INFORMATION
  Report Type: Spontaneous
  Country: US (occurrence: US)
  Receive Date: 20131207
  Receipt Date: 20131207
  Transmission Date: 20140711
  Serious: Yes (Other)
  Sender: FDA-Public Use
  Company Number: US-SUN PHARMACEUTICAL INDUSTRIES LTD-2013SUN05118

PATIENT
  Age: 71 Year
  Sex: Female

DRUGS (9)
  1. GEMCITABINE [Suspect]
     Indication: PULMONARY MASS
     Dosage: UNK, WEEKLY
     Route: 065
  2. GEMCITABINE [Suspect]
     Dosage: UNK, WEEKLY
     Route: 065
  3. ASPIRIN [Concomitant]
  4. FLUOXETINE [Concomitant]
  5. FUROSEMIDE [Concomitant]
  6. GABAPENTIN [Concomitant]
  7. ZOLPIDEM TARTRATE [Concomitant]
  8. LEVOTHYROXINE [Concomitant]
  9. CALCIUM WITH CHOLECALCIFEROL [Concomitant]

REACTIONS (1)
  - Subacute cutaneous lupus erythematosus [Recovered/Resolved]
